FAERS Safety Report 17541159 (Version 4)
Quarter: 2020Q2

REPORT INFORMATION
  Report Type: Report from Study
  Country: US (occurrence: US)
  Receive Date: 20200313
  Receipt Date: 20200520
  Transmission Date: 20200713
  Serious: No
  Sender: FDA-Public Use
  Company Number: NVSC2020US069662

PATIENT
  Age: 78 Year
  Sex: Female

DRUGS (1)
  1. ENTRESTO [Suspect]
     Active Substance: SACUBITRIL\VALSARTAN
     Indication: CARDIAC FAILURE
     Dosage: 1 DF (24 MG SACUBITRIL /26 MGVALSARTAN), BID
     Route: 048
     Dates: start: 20191213, end: 20200319

REACTIONS (6)
  - Weight decreased [Unknown]
  - Cough [Unknown]
  - Heart rate increased [Unknown]
  - Rash [Recovering/Resolving]
  - Increased appetite [Unknown]
  - Miliaria [Recovering/Resolving]

NARRATIVE: CASE EVENT DATE: 201912
